FAERS Safety Report 23792900 (Version 4)
Quarter: 2024Q3

REPORT INFORMATION
  Report Type: Spontaneous
  Country: US (occurrence: US)
  Receive Date: 20240429
  Receipt Date: 20240723
  Transmission Date: 20241016
  Serious: No
  Sender: NOVARTIS
  Company Number: US-002147023-NVSC2024US087852

PATIENT
  Sex: Female
  Weight: 103 kg

DRUGS (1)
  1. FABHALTA [Suspect]
     Active Substance: IPTACOPAN HYDROCHLORIDE
     Indication: Paroxysmal nocturnal haemoglobinuria
     Dosage: 200 MG, BID (TABLET)
     Route: 048
     Dates: start: 20240120

REACTIONS (6)
  - Chills [Recovering/Resolving]
  - Tachycardia [Recovering/Resolving]
  - Skin depigmentation [Recovering/Resolving]
  - Pruritus [Recovering/Resolving]
  - Urinary tract infection [Recovering/Resolving]
  - Blood urine present [Recovering/Resolving]
